FAERS Safety Report 13435646 (Version 1)
Quarter: 2017Q2

REPORT INFORMATION
  Report Type: Spontaneous
  Country: TR (occurrence: TR)
  Receive Date: 20170413
  Receipt Date: 20170413
  Transmission Date: 20170830
  Serious: Yes (Other)
  Sender: FDA-Public Use
  Company Number: TR-JNJFOC-20170412917

PATIENT
  Sex: Female

DRUGS (3)
  1. SIMPONI [Suspect]
     Active Substance: GOLIMUMAB
     Indication: RHEUMATOID ARTHRITIS
     Route: 058
     Dates: end: 20170410
  2. ARAVA [Concomitant]
     Active Substance: LEFLUNOMIDE
     Route: 065
  3. PREDNOL [Concomitant]
     Active Substance: METHYLPREDNISOLONE
     Route: 065

REACTIONS (1)
  - Ventricular tachycardia [Unknown]
